FAERS Safety Report 19310618 (Version 1)
Quarter: 2021Q2

REPORT INFORMATION
  Report Type: Report from Study
  Country: BR (occurrence: BR)
  Receive Date: 20210526
  Receipt Date: 20210526
  Transmission Date: 20210717
  Serious: Yes (Hospitalization, Other)
  Sender: FDA-Public Use
  Company Number: NVSC2021BR116014

PATIENT
  Sex: Female

DRUGS (1)
  1. FULVESTRANTO [Suspect]
     Active Substance: FULVESTRANT
     Indication: PRODUCT USED FOR UNKNOWN INDICATION
     Dosage: UNK, QMO
     Route: 065
     Dates: start: 20191114

REACTIONS (5)
  - Fatigue [Recovering/Resolving]
  - Laziness [Unknown]
  - Dengue fever [Unknown]
  - Hypoglycaemia [Unknown]
  - Memory impairment [Not Recovered/Not Resolved]
